FAERS Safety Report 24270306 (Version 2)
Quarter: 2024Q3

REPORT INFORMATION
  Report Type: Spontaneous
  Country: AU (occurrence: None)
  Receive Date: 20240830
  Receipt Date: 20240902
  Transmission Date: 20241017
  Serious: Yes (Other)
  Sender: ASTRAZENECA
  Company Number: 2024A166733

PATIENT
  Age: 50 Year
  Sex: Female

DRUGS (2)
  1. RILAST [Suspect]
     Active Substance: BUDESONIDE\FORMOTEROL
     Indication: Asthma
     Dosage: 400/12 UG,TWO TIMES A DAY.
     Route: 055
     Dates: start: 202407, end: 202407
  2. RILAST [Suspect]
     Active Substance: BUDESONIDE\FORMOTEROL
     Indication: Asthma
     Dosage: 400/12 UG,TWO TIMES A DAY.
     Route: 055

REACTIONS (4)
  - Condition aggravated [Unknown]
  - Device delivery system issue [Recovered/Resolved]
  - Device defective [Unknown]
  - Drug dose omission by device [Unknown]

NARRATIVE: CASE EVENT DATE: 20240701
